FAERS Safety Report 8457808-5 (Version None)
Quarter: 2012Q2

REPORT INFORMATION
  Report Type: 
  Country: None (occurrence: None)
  Receive Date: 20120618
  Receipt Date: 20120618
  Transmission Date: 20120825
  Serious: Yes (Hospitalization)
  Sender: FDA-Public Use
  Company Number: None

PATIENT
  Age: 42 Year
  Sex: Male
  Weight: 75 kg

DRUGS (2)
  1. SULFASALAZINE [Suspect]
     Indication: INFLAMMATORY BOWEL DISEASE
     Dosage: 1000 MG TID PO
     Route: 048
     Dates: start: 20110426, end: 20110915
  2. SULFAMETHOXAZOLE AND TRIMETHOPRIM [Suspect]
     Indication: INFECTION
     Dosage: MG BID PO
     Route: 048
     Dates: start: 20110712, end: 20110809

REACTIONS (5)
  - RHINORRHOEA [None]
  - BACK PAIN [None]
  - NEUTROPENIA [None]
  - COUGH [None]
  - LEUKOPENIA [None]
